FAERS Safety Report 24461330 (Version 1)
Quarter: 2024Q4

REPORT INFORMATION
  Report Type: Spontaneous
  Country: US (occurrence: None)
  Receive Date: 20241018
  Receipt Date: 20241018
  Transmission Date: 20250115
  Serious: Yes (Other)
  Sender: Public
  Company Number: None

PATIENT
  Age: 77 Year
  Sex: Female
  Weight: 78.75 kg

DRUGS (7)
  1. ALENDRONATE SODIUM [Suspect]
     Active Substance: ALENDRONATE SODIUM
     Indication: Osteoporosis
     Dosage: OTHER QUANTITY : 1 TABLET(S);?OTHER FREQUENCY : WEEK;?
     Route: 048
  2. Dicyclomine [Concomitant]
  3. PANTOPRAZOLE [Concomitant]
  4. ATORVASTATIN [Concomitant]
  5. HCT 12.5mg [Concomitant]
  6. Vit. C [Concomitant]
  7. IRON [Concomitant]
     Active Substance: IRON

REACTIONS (8)
  - Dyspnoea [None]
  - Pruritus [None]
  - Hyperhidrosis [None]
  - Eructation [None]
  - Dizziness [None]
  - Blepharospasm [None]
  - Decreased appetite [None]
  - Influenza like illness [None]

NARRATIVE: CASE EVENT DATE: 20240811
